FAERS Safety Report 7045888-3 (Version None)
Quarter: 2010Q4

REPORT INFORMATION
  Report Type: 
  Country: None (occurrence: None)
  Receive Date: 20101014
  Receipt Date: 20101001
  Transmission Date: 20110411
  Serious: Yes (Disabling, Other)
  Sender: FDA-Public Use
  Company Number: PHEH2007US03377

PATIENT
  Sex: Male
  Weight: 99.773 kg

DRUGS (15)
  1. AREDIA [Suspect]
     Dosage: 30MG
     Route: 042
  2. CALCIUM [Concomitant]
  3. VITAMIN D [Concomitant]
  4. TAXOL [Concomitant]
  5. NEUPOGEN [Concomitant]
  6. GEMZAR [Concomitant]
  7. NORVASC [Concomitant]
  8. ZYRTEC [Concomitant]
  9. FELODIPINE [Concomitant]
  10. LOVASTATIN [Concomitant]
  11. LORTAB [Concomitant]
  12. CARDIZEM [Concomitant]
  13. COMPAZINE [Concomitant]
  14. PRILOSEC [Concomitant]
  15. MAGNESIUM CITRATE [Concomitant]

REACTIONS (36)
  - ANXIETY [None]
  - ASTHENIA [None]
  - ATELECTASIS [None]
  - ATRIAL FLUTTER [None]
  - ATRIOVENTRICULAR BLOCK FIRST DEGREE [None]
  - BONE DENSITY DECREASED [None]
  - CENTRAL VENOUS CATHETERISATION [None]
  - CEREBRAL ATROPHY [None]
  - CONFUSIONAL STATE [None]
  - DECREASED INTEREST [None]
  - DYSPNOEA EXERTIONAL [None]
  - FALL [None]
  - GAIT DISTURBANCE [None]
  - GENERAL PHYSICAL HEALTH DETERIORATION [None]
  - HAEMATURIA [None]
  - LIVER FUNCTION TEST ABNORMAL [None]
  - LOOSE TOOTH [None]
  - LUNG HYPERINFLATION [None]
  - LYMPHOCYTE COUNT DECREASED [None]
  - NAUSEA [None]
  - NEUTROPHIL COUNT INCREASED [None]
  - OSTEONECROSIS OF JAW [None]
  - PAIN [None]
  - PANCREATITIS [None]
  - PARKINSON'S DISEASE [None]
  - PHLEBOSCLEROSIS [None]
  - PRESYNCOPE [None]
  - PULMONARY FIBROSIS [None]
  - RENAL CYST [None]
  - RIB FRACTURE [None]
  - SINUS TACHYCARDIA [None]
  - TOOTH EXTRACTION [None]
  - TYPE 2 DIABETES MELLITUS [None]
  - URINARY TRACT INFECTION [None]
  - VERTIGO [None]
  - VOMITING [None]
